FAERS Safety Report 6418641-9 (Version None)
Quarter: 2009Q4

REPORT INFORMATION
  Report Type: 
  Country: None (occurrence: None)
  Receive Date: 20091026
  Receipt Date: 20091013
  Transmission Date: 20100525
  Serious: Yes (Other)
  Sender: FDA-Public Use
  Company Number: ASDR40522009

PATIENT
  Age: 85 Year
  Sex: Male

DRUGS (12)
  1. SIMVASTATIN [Suspect]
     Indication: CEREBRAL ISCHAEMIA
     Route: 048
     Dates: start: 20090310, end: 20090407
  2. ASPIRIN [Concomitant]
  3. CALCIUM + VIT. D [Concomitant]
  4. CLOBETASONE BUTYRATE [Concomitant]
  5. DIPYRIDAMOLE [Concomitant]
  6. DOCUSATE SODIUM [Concomitant]
  7. HYDROCORTISONE [Concomitant]
  8. ISOPROPYL MYRISTATE [Concomitant]
  9. ISPAGHULA HUSK [Concomitant]
  10. LORATADINE [Concomitant]
  11. OMEPRAZOLE [Concomitant]
  12. PARAFFIN LIQUID [Concomitant]

REACTIONS (2)
  - ERYTHEMA MULTIFORME [None]
  - GOUT [None]
